FAERS Safety Report 8030958-3 (Version None)
Quarter: 2012Q1

REPORT INFORMATION
  Report Type: 
  Country: None (occurrence: None)
  Receive Date: 20120109
  Receipt Date: 20120103
  Transmission Date: 20120608
  Serious: Yes (Hospitalization, Other)
  Sender: FDA-Public Use
  Company Number: US-BRISTOL-MYERS SQUIBB COMPANY-16329559

PATIENT
  Age: 64 Year
  Sex: Female
  Weight: 59 kg

DRUGS (9)
  1. IRON [Concomitant]
  2. VITAMIN D [Concomitant]
  3. MULTI-VITAMINS [Concomitant]
  4. CARBOPLATIN [Suspect]
     Indication: BREAST CANCER IN SITU
     Dosage: NO OF TREATMENTS:6,RESTARTED IN AUG-2011, 02SEP11
     Route: 042
     Dates: start: 20071120
  5. PLATINOL [Suspect]
     Indication: BREAST CANCER IN SITU
     Dosage: NO OF TREATMENTS:6,RESTARTED IN AUG-2011,
     Dates: start: 20071120
  6. PACLITAXEL [Suspect]
     Indication: BREAST CANCER IN SITU
     Route: 042
  7. LOVENOX [Suspect]
  8. PACLITAXEL [Suspect]
     Indication: BREAST CANCER IN SITU
     Dosage: NO OF TREATMENTS:6,RESTARTED IN AUG-2011, 02SEP11
     Route: 042
  9. ZOFRAN [Suspect]
     Indication: PREMEDICATION
     Route: 042

REACTIONS (25)
  - LUNG DISORDER [None]
  - CONSTIPATION [None]
  - AGEUSIA [None]
  - NAIL DISORDER [None]
  - OEDEMA PERIPHERAL [None]
  - PAIN IN EXTREMITY [None]
  - ABDOMINAL PAIN [None]
  - CONTUSION [None]
  - DECREASED APPETITE [None]
  - NEOPLASM MALIGNANT [None]
  - HEADACHE [None]
  - DYSGEUSIA [None]
  - HOT FLUSH [None]
  - HUNGER [None]
  - NAUSEA [None]
  - VOMITING [None]
  - DRY MOUTH [None]
  - HYPOAESTHESIA [None]
  - DIZZINESS [None]
  - THROMBOSIS [None]
  - EPISTAXIS [None]
  - GASTRIC HAEMORRHAGE [None]
  - SYNCOPE [None]
  - ERYTHEMA [None]
  - DRY SKIN [None]
